FAERS Safety Report 4372586-7 (Version None)
Quarter: 2004Q2

REPORT INFORMATION
  Report Type: 
  Country: None (occurrence: None)
  Receive Date: 20040526
  Receipt Date: 20040517
  Transmission Date: 20050107
  Serious: Yes (Other)
  Sender: FDA-Public Use
  Company Number: HQWYE940717MAY04

PATIENT
  Age: 63 Year
  Sex: Female

DRUGS (12)
  1. EFFEXOR XR [Suspect]
     Indication: DEPRESSION
     Dosage: SEE IMAGE
     Route: 048
     Dates: start: 20030803, end: 20031022
  2. EFFEXOR XR [Suspect]
     Indication: DEPRESSION
     Dosage: SEE IMAGE
     Route: 048
     Dates: start: 20031023, end: 20040211
  3. ACCUPRIL [Concomitant]
  4. NEURONTIN [Concomitant]
  5. ZOCOR [Concomitant]
  6. HYDROCHLOROTHIAZIDE [Concomitant]
  7. LORAZEPAM [Concomitant]
  8. GLUCOSAMINE (GLUCOSAMINE) [Concomitant]
  9. CHONDROITIN SULFATE (CHONDROITIN SULFATE) [Concomitant]
  10. CENTRUM SILVER (MULTIVITAMIN /MULTIMINERAL) [Concomitant]
  11. FIBERCON (CALCIUM POLYCARBOPHIL) [Concomitant]
  12. ACETYLSALICYLIC ACID SRT [Concomitant]

REACTIONS (2)
  - COLITIS ISCHAEMIC [None]
  - HAEMATOCHEZIA [None]
